FAERS Safety Report 13567358 (Version 3)
Quarter: 2017Q3

REPORT INFORMATION
  Report Type: Spontaneous
  Country: TW (occurrence: TW)
  Receive Date: 20170522
  Receipt Date: 20170822
  Transmission Date: 20171127
  Serious: Yes (Hospitalization, Other)
  Sender: FDA-Public Use
  Company Number: TW-NAPPMUNDI-GBR-2017-0045251

PATIENT
  Age: 62 Year
  Sex: Female

DRUGS (2)
  1. SOVENOR [Suspect]
     Active Substance: BUPRENORPHINE
     Dosage: 5 MCG, Q1H (1 PATCH OF 5MCG/H)
     Route: 062
  2. SOVENOR [Suspect]
     Active Substance: BUPRENORPHINE
     Indication: BACK PAIN
     Dosage: 10 MCG, Q1H (2 PATCHES OF 5MCG/H)
     Route: 062

REACTIONS (3)
  - Inadequate analgesia [Unknown]
  - Asthma [Recovered/Resolved]
  - Coma hepatic [Recovered/Resolved]
